FAERS Safety Report 20999986 (Version 2)
Quarter: 2022Q3

REPORT INFORMATION
  Report Type: Spontaneous
  Country: TW (occurrence: TW)
  Receive Date: 20220623
  Receipt Date: 20220706
  Transmission Date: 20221027
  Serious: Yes (Death, Other)
  Sender: FDA-Public Use
  Company Number: TW-ZAILAB-ZAI202200652

PATIENT
  Age: 67 Year
  Sex: Male

DRUGS (20)
  1. QINLOCK [Suspect]
     Active Substance: RIPRETINIB
     Indication: Gastrointestinal stromal tumour
     Dosage: 50MG TID/BID
     Route: 048
  2. QINLOCK [Suspect]
     Active Substance: RIPRETINIB
     Dosage: 50 MG, TID
     Dates: start: 20220526, end: 20220527
  3. QINLOCK [Suspect]
     Active Substance: RIPRETINIB
     Dosage: 50 MG, TID
     Dates: start: 20220603, end: 20220603
  4. QINLOCK [Suspect]
     Active Substance: RIPRETINIB
     Dosage: 50 MG, SINGLE
     Dates: start: 20220605, end: 20220605
  5. QINLOCK [Suspect]
     Active Substance: RIPRETINIB
     Dosage: 50 MG, TID
     Dates: start: 20220610, end: 20220610
  6. QINLOCK [Suspect]
     Active Substance: RIPRETINIB
     Dosage: 50 MG, BID
     Dates: start: 20220611, end: 20220611
  7. DEXTROSE [Concomitant]
     Active Substance: DEXTROSE
     Indication: Nutritional supplementation
     Dosage: 1000 ML
     Route: 042
     Dates: start: 20220526, end: 20220612
  8. DEXTROSE [Concomitant]
     Active Substance: DEXTROSE
     Dosage: 1000 ML, SINGLE
     Dates: start: 20220606, end: 20220606
  9. DEXTROSE [Concomitant]
     Active Substance: DEXTROSE
     Dosage: 1000 ML, SINGLE
     Dates: start: 20220612, end: 20220612
  10. MORPHINE [Concomitant]
     Active Substance: MORPHINE
     Indication: Pain
     Dosage: 0.5 DF, PRN
     Dates: start: 20220526
  11. MORPHINE [Concomitant]
     Active Substance: MORPHINE
     Dosage: 0.5 UNK, PRN
     Dates: start: 20220612, end: 20220612
  12. FUROSEMIDE [Concomitant]
     Active Substance: FUROSEMIDE
     Indication: Oedema
     Dosage: 10 MG, QD
     Dates: start: 20220527, end: 20220529
  13. FUROSEMIDE [Concomitant]
     Active Substance: FUROSEMIDE
     Dosage: 20 MG, QD
     Dates: start: 20220529, end: 20220529
  14. FUROSEMIDE [Concomitant]
     Active Substance: FUROSEMIDE
     Dosage: 10 MG, BID
     Dates: start: 20220530, end: 20220530
  15. FUROSEMIDE [Concomitant]
     Active Substance: FUROSEMIDE
     Dosage: 20 MG, QD
     Dates: start: 20200602, end: 20200602
  16. FUROSEMIDE [Concomitant]
     Active Substance: FUROSEMIDE
     Dosage: 10 MG, QD
     Dates: start: 20220606, end: 20220606
  17. FUROSEMIDE [Concomitant]
     Active Substance: FUROSEMIDE
     Dosage: 10 MG, QD
     Dates: start: 20220612, end: 20220612
  18. NYSTATIN [Concomitant]
     Active Substance: NYSTATIN
     Indication: Enteritis infectious
     Dosage: 4 ML
     Dates: start: 20220526, end: 20220610
  19. NYSTATIN [Concomitant]
     Active Substance: NYSTATIN
     Dosage: 4 ML, QID
     Dates: start: 20220610, end: 20220610
  20. PIPERACILLIN SODIUM\TAZOBACTAM SODIUM [Concomitant]
     Active Substance: PIPERACILLIN SODIUM\TAZOBACTAM SODIUM
     Indication: Bacterial infection
     Dosage: UNK
     Dates: start: 20220516

REACTIONS (7)
  - Neoplasm progression [Fatal]
  - Hepatic failure [Fatal]
  - Hepatic encephalopathy [Fatal]
  - Prerenal failure [Fatal]
  - Hepatorenal syndrome [Unknown]
  - Polycythaemia [Unknown]
  - Off label use [Unknown]

NARRATIVE: CASE EVENT DATE: 20220101
